FAERS Safety Report 7157998-0 (Version None)
Quarter: 2010Q4

REPORT INFORMATION
  Report Type: 
  Country: None (occurrence: None)
  Receive Date: 20101214
  Receipt Date: 20100419
  Transmission Date: 20110411
  Serious: No
  Sender: FDA-Public Use
  Company Number: US-ASTRAZENECA-2010SE17351

PATIENT
  Age: 86 Year
  Sex: Female
  Weight: 56.2 kg

DRUGS (6)
  1. CRESTOR [Suspect]
     Indication: ARTERIAL STENOSIS
     Route: 048
     Dates: start: 20090101, end: 20090101
  2. CRESTOR [Suspect]
     Route: 048
     Dates: start: 20100301
  3. ASPIRIN [Concomitant]
  4. BENICAR [Concomitant]
  5. FISH OIL [Concomitant]
  6. VITAMINS [Concomitant]

REACTIONS (5)
  - ARTHRALGIA [None]
  - FATIGUE [None]
  - MYALGIA [None]
  - PAIN IN EXTREMITY [None]
  - SENSATION OF HEAVINESS [None]
